FAERS Safety Report 6518899-1 (Version None)
Quarter: 2009Q4

REPORT INFORMATION
  Report Type: 
  Country: None (occurrence: None)
  Receive Date: 20091228
  Receipt Date: 20091217
  Transmission Date: 20100525
  Serious: Yes (Hospitalization)
  Sender: FDA-Public Use
  Company Number: US-ASTRAZENECA-2009SE32532

PATIENT
  Age: 47 Year
  Sex: Female

DRUGS (3)
  1. SEROQUEL [Suspect]
     Route: 048
     Dates: start: 20050101, end: 20091203
  2. SEROQUEL [Suspect]
     Route: 048
     Dates: start: 20091215, end: 20091216
  3. EFFEXOR XR [Concomitant]

REACTIONS (6)
  - CRYING [None]
  - DEPRESSION [None]
  - DRUG DOSE OMISSION [None]
  - FEELING ABNORMAL [None]
  - PALPITATIONS [None]
  - PANIC ATTACK [None]
